FAERS Safety Report 19284393 (Version 1)
Quarter: 2021Q2

REPORT INFORMATION
  Report Type: Spontaneous
  Country: US (occurrence: US)
  Receive Date: 20210521
  Receipt Date: 20210521
  Transmission Date: 20210717
  Serious: Yes (Hospitalization)
  Sender: FDA-Public Use
  Company Number: None

PATIENT
  Age: 77 Year
  Sex: Female

DRUGS (9)
  1. CLOBERTASOL OINT [Concomitant]
  2. LEVOTHYROXIN [Concomitant]
     Active Substance: LEVOTHYROXINE
  3. SODUM CHLORIDE 3% [Suspect]
     Active Substance: SODIUM CHLORIDE
     Indication: BRONCHIECTASIS
     Dosage: ?          OTHER DOSE:1 VIAL;?
     Route: 055
     Dates: start: 20171011
  4. MEMANTINE. [Concomitant]
     Active Substance: MEMANTINE
  5. SMZ/TMP DS [Concomitant]
     Active Substance: SULFAMETHOXAZOLE\TRIMETHOPRIM
  6. ALBUTEROL NEB SIN [Concomitant]
  7. DONEPEZIL. [Concomitant]
     Active Substance: DONEPEZIL
  8. FLCONAZOLE [Concomitant]
  9. TERBINAFINE. [Concomitant]
     Active Substance: TERBINAFINE

REACTIONS (1)
  - Hospitalisation [None]
